FAERS Safety Report 4316369-2 (Version None)
Quarter: 2004Q1

REPORT INFORMATION
  Report Type: 
  Country: None (occurrence: None)
  Receive Date: 20040311
  Receipt Date: 20040226
  Transmission Date: 20041129
  Serious: Yes (Other)
  Sender: FDA-Public Use
  Company Number: 2003122807

PATIENT
  Age: 12 Year
  Sex: Male

DRUGS (2)
  1. DILANTIN [Suspect]
     Indication: EPILEPSY
     Dosage: 120 MG (BID) ORAL
     Route: 048
     Dates: start: 20031110, end: 20031120
  2. VALPROATE SODIUM [Suspect]
     Indication: EPILEPSY
     Dosage: 19 ML (BID)
     Dates: start: 20000101

REACTIONS (4)
  - BODY TEMPERATURE INCREASED [None]
  - CONVULSION [None]
  - PHARYNGOLARYNGEAL PAIN [None]
  - RASH GENERALISED [None]
